FAERS Safety Report 16074416 (Version 2)
Quarter: 2019Q2

REPORT INFORMATION
  Report Type: Spontaneous
  Country: US (occurrence: US)
  Receive Date: 20190314
  Receipt Date: 20190426
  Transmission Date: 20190711
  Serious: Yes (Hospitalization)
  Sender: FDA-Public Use
  Company Number: US-GILEAD-2019-0395977

PATIENT
  Age: 76 Year
  Sex: Female

DRUGS (2)
  1. GENVOYA [Suspect]
     Active Substance: COBICISTAT\ELVITEGRAVIR\EMTRICITABINE\TENOFOVIR ALAFENAMIDE FUMARATE
     Indication: HIV INFECTION
     Route: 065
  2. METHYLPREDNISOLONE. [Interacting]
     Active Substance: METHYLPREDNISOLONE
     Indication: OSTEONECROSIS
     Dosage: 80 MG EVERY 3-4 MONTHS; INJECTION
     Route: 065

REACTIONS (2)
  - Drug interaction [Recovering/Resolving]
  - Secondary adrenocortical insufficiency [Recovering/Resolving]
